FAERS Safety Report 8475622-1 (Version None)
Quarter: 2012Q2

REPORT INFORMATION
  Report Type: 
  Country: None (occurrence: None)
  Receive Date: 20120628
  Receipt Date: 20120622
  Transmission Date: 20120825
  Serious: Yes (Other)
  Sender: FDA-Public Use
  Company Number: JP-B.I. PHARMACEUTICALS,INC./RIDGEFIELD-2012-BP-14206NB

PATIENT

DRUGS (1)
  1. MICARDIS [Suspect]
     Route: 065

REACTIONS (1)
  - BLADDER CANCER [None]
